FAERS Safety Report 9702171 (Version 2)
Quarter: 2013Q4

REPORT INFORMATION
  Report Type: Report from Study
  Country: DE (occurrence: DE)
  Receive Date: 20131121
  Receipt Date: 20131121
  Transmission Date: 20140711
  Serious: Yes (Hospitalization)
  Sender: FDA-Public Use
  Company Number: DE-NOVOPROD-390743

PATIENT
  Age: 33 Year
  Sex: Female
  Weight: 96 kg

DRUGS (2)
  1. LIRAGLUTIDE FLEXPEN [Suspect]
     Indication: OBESITY
     Dosage: 0.6 MG, QD
     Route: 058
     Dates: start: 20111011
  2. LIRAGLUTIDE FLEXPEN [Suspect]
     Dosage: 3 MG, QD
     Route: 058
     Dates: start: 20111115

REACTIONS (1)
  - Cholelithiasis [Recovered/Resolved]
